FAERS Safety Report 5563410-5 (Version None)
Quarter: 2007Q4

REPORT INFORMATION
  Report Type: 
  Country: None (occurrence: None)
  Receive Date: 20071217
  Receipt Date: 20070605
  Transmission Date: 20080405
  Serious: No
  Sender: FDA-Public Use
  Company Number: US-ASTRAZENECA-2007UW09221

PATIENT
  Age: 58 Year
  Sex: Female
  Weight: 72.1 kg

DRUGS (7)
  1. CRESTOR [Suspect]
     Indication: DYSLIPIDAEMIA
     Route: 048
     Dates: start: 20070409, end: 20070501
  2. NEXIUM [Concomitant]
     Indication: GASTROOESOPHAGEAL REFLUX DISEASE
     Route: 048
  3. AMBIEN [Concomitant]
     Indication: INSOMNIA
  4. LEXAPRO [Concomitant]
     Indication: DEPRESSION
     Dates: start: 20020101
  5. MULTI-VITAMIN [Concomitant]
  6. ASCORBIC ACID [Concomitant]
  7. CALCIUM [Concomitant]

REACTIONS (8)
  - BACK PAIN [None]
  - COSTOVERTEBRAL ANGLE TENDERNESS [None]
  - DIARRHOEA [None]
  - MUSCULAR WEAKNESS [None]
  - MYALGIA [None]
  - NAUSEA [None]
  - PAIN [None]
  - VOMITING [None]
